FAERS Safety Report 6251389-2 (Version None)
Quarter: 2009Q2

REPORT INFORMATION
  Report Type: 
  Country: None (occurrence: None)
  Receive Date: 20090630
  Receipt Date: 20090623
  Transmission Date: 20091009
  Serious: Yes (Life-Threatening)
  Sender: FDA-Public Use
  Company Number: B0581249A

PATIENT
  Age: 61 Year
  Sex: Female
  Weight: 75 kg

DRUGS (1)
  1. AVAMYS [Suspect]
     Indication: NASAL POLYPS
     Route: 045
     Dates: start: 20090429, end: 20090506

REACTIONS (2)
  - ASTHMA [None]
  - DYSPNOEA [None]
